FAERS Safety Report 9070700 (Version 1)
Quarter: 2013Q1

REPORT INFORMATION
  Report Type: Report from Study
  Country: US (occurrence: US)
  Receive Date: 20130129
  Receipt Date: 20130129
  Transmission Date: 20140127
  Serious: No
  Sender: FDA-Public Use
  Company Number: US-ABBOTT-12P-163-0921090-00

PATIENT
  Age: 21 Year
  Sex: Female

DRUGS (1)
  1. HUMIRA 40 MG/0.8 ML PEN [Suspect]
     Indication: CROHN^S DISEASE
     Dates: start: 2008

REACTIONS (7)
  - Laceration [Unknown]
  - Crohn^s disease [Not Recovered/Not Resolved]
  - Abscess limb [Unknown]
  - Abscess limb [Recovered/Resolved]
  - Oedema peripheral [Unknown]
  - Sinusitis [Unknown]
  - Respiratory tract congestion [Unknown]
